FAERS Safety Report 21080835 (Version 1)
Quarter: 2022Q3

REPORT INFORMATION
  Report Type: Spontaneous
  Country: US (occurrence: None)
  Receive Date: 20220713
  Receipt Date: 20220713
  Transmission Date: 20221027
  Serious: Yes (Hospitalization)
  Sender: FDA-Public Use
  Company Number: None

PATIENT
  Age: 80 Year
  Sex: Female

DRUGS (1)
  1. PIRFENIDONE [Suspect]
     Active Substance: PIRFENIDONE
     Indication: Idiopathic pulmonary fibrosis
     Dosage: 801 MG  3 TIMES A DAY ORAL
     Route: 048
     Dates: start: 20220520

REACTIONS (2)
  - Colitis [None]
  - Therapy interrupted [None]

NARRATIVE: CASE EVENT DATE: 20220628
